FAERS Safety Report 19915017 (Version 2)
Quarter: 2021Q4

REPORT INFORMATION
  Report Type: Spontaneous
  Country: US (occurrence: US)
  Receive Date: 20211004
  Receipt Date: 20211101
  Transmission Date: 20220303
  Serious: Yes (Other)
  Sender: FDA-Public Use
  Company Number: US-OCULAR THERAPEUTIX-2021OCX00044

PATIENT
  Age: 73 Year
  Sex: Male
  Weight: 147 kg

DRUGS (14)
  1. DEXTENZA [Suspect]
     Active Substance: DEXAMETHASONE
     Indication: Cataract operation
     Dosage: UNK INTO THE RIGHT INFERIOR PUNCTUM
     Dates: start: 20210915, end: 20210929
  2. UNSPECIFIED ARTIFICAL TEARS [Concomitant]
  3. LIPITOR [Concomitant]
     Active Substance: ATORVASTATIN CALCIUM
     Dosage: 20 MG, 1X/DAY
     Dates: start: 20210908
  4. TEKTURNA [Concomitant]
     Active Substance: ALISKIREN HEMIFUMARATE
     Dosage: 300 MG, 1X/DAY
     Dates: start: 20210905
  5. DIAMOX SEQUELS [Concomitant]
     Active Substance: ACETAZOLAMIDE
     Dosage: 500 MG
     Dates: start: 20210903
  6. DITROPAN XL [Concomitant]
     Active Substance: OXYBUTYNIN CHLORIDE
     Dosage: 15 MG
     Dates: start: 20210504
  7. FLOMAX [Concomitant]
     Active Substance: TAMSULOSIN HYDROCHLORIDE
     Dosage: 0.4 MG
     Dates: start: 20210504
  8. REVATIO [Concomitant]
     Active Substance: SILDENAFIL CITRATE
     Dosage: TAKE 1 TO 5 TABLETS
     Route: 048
     Dates: start: 20201222
  9. ACIPHEX [Concomitant]
     Active Substance: RABEPRAZOLE SODIUM
     Dosage: 20 MG TWICE A
     Dates: start: 20200818
  10. CHLORHEXIDINE GLUCONATE [Concomitant]
     Active Substance: CHLORHEXIDINE GLUCONATE
     Dosage: USE AS INSTRUCTED 5 DAYS P
     Dates: start: 20200803
  11. TRIMIX MAYO [Concomitant]
     Dosage: INJECT 15 UNITS AS DIRECTED
     Dates: start: 20180906
  12. VITAMIN D [Concomitant]
     Active Substance: VITAMIN D NOS
     Dosage: 2000 IU
     Route: 048
     Dates: start: 20151116
  13. ASPIRIN [Concomitant]
     Active Substance: ASPIRIN
     Dosage: 81 MG, 1X/DAY
     Route: 048
  14. MULTIPLE VITAMINS-MINERALS [Concomitant]
     Dosage: 1 DOSAGE FORM, 1X/DAY
     Route: 048

REACTIONS (1)
  - Dacryocanaliculitis [Recovered/Resolved]

NARRATIVE: CASE EVENT DATE: 20210920
